FAERS Safety Report 4726096-5 (Version None)
Quarter: 2005Q3

REPORT INFORMATION
  Report Type: 
  Country: None (occurrence: None)
  Receive Date: 20050725
  Receipt Date: 20050717
  Transmission Date: 20060218
  Serious: Yes (Other)
  Sender: FDA-Public Use
  Company Number: 2003022304

PATIENT

DRUGS (8)
  1. DOXYCYCLINE [Suspect]
     Indication: ILL-DEFINED DISORDER
     Dosage: 200 MG (100 MG, BID), ORAL
     Route: 048
     Dates: start: 20030430
  2. ZYVOX [Suspect]
     Indication: ILL-DEFINED DISORDER
     Dosage: 1200 MG (600 MG, BID), ORAL
     Route: 048
     Dates: start: 20030415, end: 20030429
  3. TRIMETHOPRIM [Concomitant]
  4. ACETYLSALICYLIC ACID SRT [Concomitant]
  5. DIHYDROCODEINE (DIHYDROCODEINE) [Concomitant]
  6. ACETAMINOPHEN [Concomitant]
  7. WARFARIN SODIUM [Concomitant]
  8. VANCOMYCIN [Concomitant]

REACTIONS (2)
  - BLOOD DISORDER [None]
  - EPISTAXIS [None]
